FAERS Safety Report 16678099 (Version 1)
Quarter: 2019Q3

REPORT INFORMATION
  Report Type: Spontaneous
  Country: US (occurrence: US)
  Receive Date: 20190806
  Receipt Date: 20190806
  Transmission Date: 20191004
  Serious: Yes (Other)
  Sender: FDA-Public Use
  Company Number: None

PATIENT
  Age: 46 Year
  Sex: Female
  Weight: 83.91 kg

DRUGS (10)
  1. MEKTOVI [Suspect]
     Active Substance: BINIMETINIB
     Indication: MALIGNANT MELANOMA
     Route: 048
     Dates: start: 20181119, end: 20190806
  2. MORPHINE SULFATE ER 30MG [Concomitant]
     Active Substance: MORPHINE SULFATE
  3. ALPRAZOLAM 0.5MG [Concomitant]
     Active Substance: ALPRAZOLAM
  4. LIDOCAINE 4% [Concomitant]
     Active Substance: LIDOCAINE
  5. OXYCODONE 5MG [Concomitant]
     Active Substance: OXYCODONE
  6. NORTRIPTYLINE 25MG [Concomitant]
  7. DULOXETINE 20MG [Concomitant]
     Active Substance: DULOXETINE
  8. DIFLUSINAL 500MG [Concomitant]
  9. ONDANSETRON 8MG [Concomitant]
     Active Substance: ONDANSETRON
  10. BRAFTOVI [Suspect]
     Active Substance: ENCORAFENIB
     Indication: MALIGNANT MELANOMA
     Route: 048
     Dates: start: 20181119, end: 20190806

REACTIONS (2)
  - Metastases to central nervous system [None]
  - Disease progression [None]

NARRATIVE: CASE EVENT DATE: 20190806
